FAERS Safety Report 21633119 (Version 1)
Quarter: 2022Q4

REPORT INFORMATION
  Report Type: Spontaneous
  Country: RU (occurrence: RU)
  Receive Date: 20221123
  Receipt Date: 20221123
  Transmission Date: 20230113
  Serious: Yes (Hospitalization, Other)
  Sender: FDA-Public Use
  Company Number: RU-BAXTER-2022BAX025254

PATIENT
  Sex: Female

DRUGS (1)
  1. DIANEAL [Suspect]
     Active Substance: CALCIUM CHLORIDE\DEXTROSE\MAGNESIUM CHLORIDE\SODIUM CHLORIDE\SODIUM LACTATE
     Indication: Peritoneal dialysis
     Dosage: 2L BAG
     Route: 033

REACTIONS (3)
  - Product leakage [Unknown]
  - Product administration error [Unknown]
  - Peritonitis [Unknown]

NARRATIVE: CASE EVENT DATE: 20221115
